FAERS Safety Report 8909747 (Version 2)
Quarter: 2014Q2

REPORT INFORMATION
  Report Type: Spontaneous
  Country: IT (occurrence: IT)
  Receive Date: 20121115
  Receipt Date: 20131018
  Transmission Date: 20141212
  Serious: Yes (Other)
  Sender: FDA-Public Use
  Company Number: IT-PFIZER INC-2011202531

PATIENT
  Age: 49 Year
  Sex: Female

DRUGS (7)
  1. CYTARABINE [Suspect]
     Indication: ACUTE MYELOID LEUKAEMIA
     Dosage: 6.4 G, 1X/DAY
     Route: 042
     Dates: start: 20110812, end: 20110816
  2. NAVOBAN [Concomitant]
     Dosage: UNK
     Dates: start: 20110812, end: 20110816
  3. ZOVIRAX [Concomitant]
     Dosage: UNK
     Dates: start: 20110810, end: 20110819
  4. RANIDIL [Concomitant]
     Dosage: UNK
     Dates: start: 20110811, end: 20110819
  5. LEVOXACIN [Concomitant]
     Dosage: UNK
     Dates: start: 20110812, end: 20110819
  6. SPORANOX [Concomitant]
     Dosage: UNK
     Dates: start: 20110812, end: 20110819
  7. IDARUBICIN [Concomitant]
     Dosage: UNK
     Dates: start: 20110812, end: 20110813

REACTIONS (2)
  - Palmar-plantar erythrodysaesthesia syndrome [Recovering/Resolving]
  - Generalised erythema [Recovering/Resolving]
